FAERS Safety Report 13838791 (Version 1)
Quarter: 2017Q3

REPORT INFORMATION
  Report Type: Spontaneous
  Country: US (occurrence: US)
  Receive Date: 20170807
  Receipt Date: 20170807
  Transmission Date: 20171127
  Serious: No
  Sender: FDA-Public Use
  Company Number: US-PFIZER INC-2017337222

PATIENT
  Age: 64 Year
  Sex: Female

DRUGS (9)
  1. TRAMADOL. [Concomitant]
     Active Substance: TRAMADOL
     Dosage: UNK UNK, 3X/DAY (325/37.5MG 3X DAY)
  2. MELOXICAM. [Concomitant]
     Active Substance: MELOXICAM
     Dosage: 7.5 MG, 1X/DAY
  3. XELJANZ [Suspect]
     Active Substance: TOFACITINIB CITRATE
     Dosage: 5 MG, 2X/DAY
  4. METHOTREXATE. [Concomitant]
     Active Substance: METHOTREXATE
     Dosage: 17.5 MG, WEEKLY
  5. FOSAMAX [Concomitant]
     Active Substance: ALENDRONATE SODIUM
     Dosage: 70 MG, WEEKLY
  6. METFORMIN [Concomitant]
     Active Substance: METFORMIN HYDROCHLORIDE
     Dosage: 500 MG, 1X/DAY
  7. COZAAR [Concomitant]
     Active Substance: LOSARTAN POTASSIUM
     Dosage: UNK UNK, 1X/DAY (100/25MG 1X DAY)
  8. TIZANIDINE. [Concomitant]
     Active Substance: TIZANIDINE
     Dosage: 16 MG, DAILY (1 BID + 2 AT BEDTIME)
  9. PLAVIX [Concomitant]
     Active Substance: CLOPIDOGREL BISULFATE
     Dosage: 75 MG, 1X/DAY

REACTIONS (1)
  - Blister [Unknown]
